FAERS Safety Report 11334933 (Version 1)
Quarter: 2015Q3

REPORT INFORMATION
  Report Type: Spontaneous
  Country: US (occurrence: None)
  Receive Date: 20150731
  Receipt Date: 20150731
  Transmission Date: 20151125
  Serious: No
  Sender: FDA-Public Use
  Company Number: None

PATIENT
  Age: 53 Year
  Sex: Female
  Weight: 49.9 kg

DRUGS (2)
  1. ESTROGEN METHYLTESTOS [Suspect]
     Active Substance: ESTROGENS\METHYLTESTOSTERONE
     Indication: MENOPAUSAL SYMPTOMS
     Route: 048
     Dates: start: 20150602, end: 20150729
  2. ALLEGRA [Concomitant]
     Active Substance: FEXOFENADINE HYDROCHLORIDE

REACTIONS (1)
  - Seborrhoeic dermatitis [None]

NARRATIVE: CASE EVENT DATE: 20150608
